FAERS Safety Report 9906246 (Version 2)
Quarter: 2014Q2

REPORT INFORMATION
  Report Type: Report from Study
  Country: BE (occurrence: BE)
  Receive Date: 20140218
  Receipt Date: 20140422
  Transmission Date: 20141212
  Serious: Yes (Life-Threatening, Hospitalization, Other)
  Sender: FDA-Public Use
  Company Number: BE-ASTRAZENECA-2014SE10816

PATIENT
  Age: 57 Year
  Sex: Male

DRUGS (4)
  1. TICAGRELOR [Suspect]
     Indication: ACUTE CORONARY SYNDROME
     Route: 048
  2. ASPEGIC [Suspect]
     Indication: ACUTE CORONARY SYNDROME
     Route: 048
     Dates: start: 20131006, end: 20131006
  3. ANGIOX [Concomitant]
     Dosage: BOLUS + INFUSION ON 1.75MG/KG/H
  4. HEPARINE [Concomitant]
     Dosage: 4000E IV

REACTIONS (2)
  - Drug ineffective [Recovered/Resolved]
  - Angina pectoris [Recovered/Resolved]
